FAERS Safety Report 9995397 (Version 2)
Quarter: 2014Q1

REPORT INFORMATION
  Report Type: Spontaneous
  Country: US (occurrence: None)
  Receive Date: 20140306
  Receipt Date: 20140324
  Transmission Date: 20141002
  Serious: Yes (Death)
  Sender: FDA-Public Use
  Company Number: UTC-045331

PATIENT
  Age: 76 Year
  Sex: Female
  Weight: 42.7 kg

DRUGS (3)
  1. TYVASO [Suspect]
     Indication: COR PULMONALE CHRONIC
     Dosage: 18 TO 54 MICROGRAM (4 IN 1 D), INHALATION
     Route: 055
     Dates: start: 20100410, end: 20140212
  2. TRACLEER (BOSENTAN) (UNKNOWN) [Concomitant]
  3. REVATIO (SILDENAFIL CITRATE) (UNKNOWN) [Concomitant]

REACTIONS (5)
  - Death [None]
  - Pulmonary arterial hypertension [None]
  - Scleroderma [None]
  - CREST syndrome [None]
  - Disease progression [None]
